FAERS Safety Report 7070103-4 (Version None)
Quarter: 2010Q4

REPORT INFORMATION
  Report Type: 
  Country: None (occurrence: None)
  Receive Date: 20101028
  Receipt Date: 20100916
  Transmission Date: 20110411
  Serious: No
  Sender: FDA-Public Use
  Company Number: US-WYE-H17406610

PATIENT
  Age: 12 Year
  Sex: Male

DRUGS (1)
  1. ADVIL [Suspect]
     Indication: HEADACHE
     Dosage: 2 CAPLETS 4-6 HOURS APART TWICE
     Route: 048
     Dates: start: 20100906, end: 20100906

REACTIONS (2)
  - RASH [None]
  - WHEEZING [None]
